FAERS Safety Report 8974321 (Version 1)
Quarter: 2012Q4

REPORT INFORMATION
  Report Type: Spontaneous
  Country: US (occurrence: None)
  Receive Date: 20121212
  Receipt Date: 20121212
  Transmission Date: 20130627
  Serious: Yes (Other)
  Sender: FDA-Public Use
  Company Number: 2012-01733

PATIENT
  Age: 71 Year
  Sex: Female
  Weight: 83.46 kg

DRUGS (2)
  1. SIMVASTATIN [Suspect]
     Indication: HIGH CHOLESTEROL
     Route: 048
     Dates: start: 201209, end: 2010
  2. BUDESONIDE [Concomitant]

REACTIONS (3)
  - Parkinson^s disease [None]
  - Condition aggravated [None]
  - Muscular weakness [None]
